FAERS Safety Report 10012129 (Version 4)
Quarter: 2014Q2

REPORT INFORMATION
  Report Type: Report from Study
  Country: US (occurrence: US)
  Receive Date: 20140314
  Receipt Date: 20140623
  Transmission Date: 20141212
  Serious: Yes (Other)
  Sender: FDA-Public Use
  Company Number: US-SANOFI-AVENTIS-2013SA063894

PATIENT
  Age: 45 Year
  Sex: Female

DRUGS (3)
  1. AUBAGIO [Suspect]
     Indication: MULTIPLE SCLEROSIS
     Route: 048
     Dates: start: 20130601, end: 20140425
  2. IMMUNOGLOBULIN [Suspect]
     Route: 065
  3. CORTICOSTEROID NOS [Concomitant]

REACTIONS (11)
  - Balance disorder [Not Recovered/Not Resolved]
  - Pollakiuria [Recovering/Resolving]
  - Dry skin [Recovering/Resolving]
  - Pruritus [Unknown]
  - Insomnia [Unknown]
  - Alopecia [Recovering/Resolving]
  - Paraesthesia [Unknown]
  - Burning sensation [Unknown]
  - Headache [Unknown]
  - Nausea [Unknown]
  - Pyrexia [Unknown]
